FAERS Safety Report 10670142 (Version 2)
Quarter: 2014Q4

REPORT INFORMATION
  Report Type: Spontaneous
  Country: GB (occurrence: GB)
  Receive Date: 20141223
  Receipt Date: 20141231
  Transmission Date: 20150529
  Serious: Yes (Other)
  Sender: FDA-Public Use
  Company Number: GB-AUROBINDO-AUR-APL-2014-13063

PATIENT
  Age: 63 Year
  Sex: Female

DRUGS (1)
  1. ALENDRONIC ACID [Suspect]
     Active Substance: ALENDRONIC ACID
     Indication: PRODUCT USED FOR UNKNOWN INDICATION
     Dosage: UNK
     Route: 065

REACTIONS (11)
  - Impaired healing [Recovered/Resolved]
  - Fracture displacement [Recovered/Resolved]
  - Nerve compression [Recovered/Resolved]
  - Abasia [Recovered/Resolved]
  - Hypokinesia [Recovered/Resolved]
  - Mobility decreased [Recovered/Resolved]
  - Wheelchair user [Recovered/Resolved]
  - Pelvic fracture [Recovered/Resolved]
  - Hip deformity [Recovered/Resolved]
  - Pain [Recovered/Resolved]
  - Condition aggravated [Recovered/Resolved]
